FAERS Safety Report 6338706-X (Version None)
Quarter: 2009Q3

REPORT INFORMATION
  Report Type: 
  Country: None (occurrence: None)
  Receive Date: 20090828
  Receipt Date: 20090513
  Transmission Date: 20100115
  Serious: Yes (Other)
  Sender: FDA-Public Use
  Company Number: 2009-03410

PATIENT
  Age: 45 Year
  Sex: Female

DRUGS (2)
  1. INFED [Suspect]
     Indication: IRON DEFICIENCY ANAEMIA
     Dosage: 1 ML ONLY OF 10 ML'S IN A 1 LITER BAG, INTRAVENOUS
     Route: 042
     Dates: start: 20090508, end: 20090508
  2. PREVACID [Concomitant]

REACTIONS (1)
  - ANAPHYLACTIC REACTION [None]
